FAERS Safety Report 17289273 (Version 3)
Quarter: 2020Q1

REPORT INFORMATION
  Report Type: Spontaneous
  Country: US (occurrence: US)
  Receive Date: 20200120
  Receipt Date: 20200330
  Transmission Date: 20200409
  Serious: No
  Sender: FDA-Public Use
  Company Number: US-009507513-2001USA000426

PATIENT
  Age: 78 Year
  Sex: Female

DRUGS (2)
  1. ASMANEX [Suspect]
     Active Substance: MOMETASONE FUROATE
     Indication: ASTHMA
     Dosage: NIGHTLY
  2. ASMANEX [Suspect]
     Active Substance: MOMETASONE FUROATE
     Dosage: NIGHTLY
     Dates: start: 201912

REACTIONS (5)
  - Poor quality device used [Unknown]
  - Cough [Unknown]
  - Product dose omission [Unknown]
  - Product quality issue [Unknown]
  - Discomfort [Unknown]

NARRATIVE: CASE EVENT DATE: 201912
